FAERS Safety Report 21266648 (Version 3)
Quarter: 2022Q4

REPORT INFORMATION
  Report Type: Spontaneous
  Country: JP (occurrence: JP)
  Receive Date: 20220829
  Receipt Date: 20221003
  Transmission Date: 20230112
  Serious: Yes (Death, Life-Threatening, Other)
  Sender: FDA-Public Use
  Company Number: JP-GILEAD-2022-0593851

PATIENT
  Age: 76 Year
  Sex: Male
  Weight: 38.4 kg

DRUGS (28)
  1. VEKLURY [Suspect]
     Active Substance: REMDESIVIR
     Indication: COVID-19
     Dosage: 200 MG, QD
     Route: 041
     Dates: start: 20220807, end: 20220807
  2. VEKLURY [Suspect]
     Active Substance: REMDESIVIR
     Dosage: 100 MG, QD
     Route: 041
     Dates: start: 20220808, end: 20220811
  3. VEKLURY [Suspect]
     Active Substance: REMDESIVIR
     Dosage: 100 MG, QD
     Route: 041
     Dates: start: 20220817, end: 20220819
  4. LAGEVRIO [Concomitant]
     Active Substance: MOLNUPIRAVIR
     Indication: COVID-19
     Dosage: 800 MG, QD
     Route: 048
     Dates: start: 20220806, end: 20220806
  5. SOLDEM 3AG [Concomitant]
     Dosage: UNK
     Route: 041
     Dates: start: 20220802, end: 20220807
  6. AMPICILLIN SODIUM\SULBACTAM SODIUM [Concomitant]
     Active Substance: AMPICILLIN SODIUM\SULBACTAM SODIUM
     Dosage: 3 G, BID
     Route: 041
     Dates: start: 20220802, end: 20220807
  7. CALONAL [Concomitant]
     Active Substance: ACETAMINOPHEN
     Dosage: 400 MG
     Dates: start: 20220806, end: 20220806
  8. CALONAL [Concomitant]
     Active Substance: ACETAMINOPHEN
     Dosage: 400 MG
     Dates: start: 20220808, end: 20220808
  9. CALONAL [Concomitant]
     Active Substance: ACETAMINOPHEN
     Dosage: 400 MG
     Dates: start: 20220812, end: 20220812
  10. CALONAL [Concomitant]
     Active Substance: ACETAMINOPHEN
     Dosage: 400 MG
     Dates: start: 20220813, end: 20220813
  11. CALONAL [Concomitant]
     Active Substance: ACETAMINOPHEN
     Dosage: 400 MG
     Dates: start: 20220814, end: 20220814
  12. CALONAL [Concomitant]
     Active Substance: ACETAMINOPHEN
     Dosage: 400 MG
     Dates: start: 20220823, end: 20220823
  13. CALONAL [Concomitant]
     Active Substance: ACETAMINOPHEN
     Dosage: 400 MG
     Dates: start: 20220824, end: 20220824
  14. INSULIN LISPRO [Concomitant]
     Active Substance: INSULIN LISPRO
     Indication: Hypoglycaemia
     Dosage: UNK UNK, QD
     Dates: start: 20220802, end: 20220802
  15. INSULIN LISPRO [Concomitant]
     Active Substance: INSULIN LISPRO
     Dosage: UNK, TID
     Dates: start: 20220803, end: 20220803
  16. INSULIN LISPRO [Concomitant]
     Active Substance: INSULIN LISPRO
     Dosage: UNK, QD
     Dates: start: 20220804, end: 20220804
  17. INSULIN LISPRO [Concomitant]
     Active Substance: INSULIN LISPRO
     Dosage: UNK, BID
     Dates: start: 20220805, end: 20220805
  18. INSULIN LISPRO [Concomitant]
     Active Substance: INSULIN LISPRO
     Dosage: UNK, QD
     Dates: start: 20220806, end: 20220806
  19. INSULIN LISPRO [Concomitant]
     Active Substance: INSULIN LISPRO
     Dosage: UNK, TID
     Dates: start: 20220807, end: 20220807
  20. INSULIN LISPRO [Concomitant]
     Active Substance: INSULIN LISPRO
     Dosage: UNK, BID
     Dates: start: 20220808, end: 20220808
  21. INSULIN LISPRO [Concomitant]
     Active Substance: INSULIN LISPRO
     Dosage: UNK, TID
     Dates: start: 20220809, end: 20220810
  22. INSULIN LISPRO [Concomitant]
     Active Substance: INSULIN LISPRO
     Dosage: UNK, BID
     Dates: start: 20220811, end: 20220813
  23. INSULIN LISPRO [Concomitant]
     Active Substance: INSULIN LISPRO
     Dosage: UNK, QD
     Dates: start: 20220814, end: 20220814
  24. INSULIN LISPRO [Concomitant]
     Active Substance: INSULIN LISPRO
     Dosage: UNK, TID
     Dates: start: 20220815, end: 20220817
  25. INSULIN LISPRO [Concomitant]
     Active Substance: INSULIN LISPRO
     Dosage: UNK, BID
     Dates: start: 20220818, end: 20220818
  26. INSULIN LISPRO [Concomitant]
     Active Substance: INSULIN LISPRO
     Dosage: UNK, BID
     Dates: start: 20220823, end: 20220823
  27. INSULIN LISPRO [Concomitant]
     Active Substance: INSULIN LISPRO
     Dosage: UNK, TID
     Dates: start: 20220824, end: 20220824
  28. INSULIN LISPRO [Concomitant]
     Active Substance: INSULIN LISPRO
     Dosage: UNK, BID
     Dates: start: 20220825, end: 20220825

REACTIONS (2)
  - Pneumonia [Fatal]
  - Cardiac failure chronic [Fatal]

NARRATIVE: CASE EVENT DATE: 20220817
